FAERS Safety Report 10388701 (Version 1)
Quarter: 2014Q1

REPORT INFORMATION
  Report Type: Spontaneous
  Country: US (occurrence: None)
  Receive Date: 20140306
  Receipt Date: 20140306
  Transmission Date: 20141002
  Serious: Yes (Hospitalization)
  Sender: FDA-Public Use
  Company Number: 163-21880-13110493

PATIENT
  Age: 73 Year
  Sex: Male

DRUGS (13)
  1. REVLIMID (LENALIDOMIDE) (10 MILLIGRAM, CAPSULES) [Suspect]
     Indication: MYELODYSPLASTIC SYNDROME
     Route: 048
     Dates: start: 20131018, end: 20131104
  2. AMIODARONE HCL (AMIODARONE HYDROCHLORIDE) [Concomitant]
  3. ATORVASTATIN CALCIUM [Concomitant]
  4. CARVEDILOL [Concomitant]
  5. FAMOTIDINE [Concomitant]
  6. FUROSEMIDE [Concomitant]
  7. IMDUR (ISOSORBIDE MONONITRATE) [Concomitant]
  8. FOLTX (TRIOBE) [Concomitant]
  9. LANTUS (INSULIN GLARGINE) [Concomitant]
  10. SULFASALAZINE [Concomitant]
  11. ASPIRIN LOW DOSE (ACETYLSALICYLIC ACID) [Concomitant]
  12. LISINOPRIL-HYDROCHLOROTHIAZIDE (PRINZIDE) [Concomitant]
  13. SIMCOR (SIMVASTATIN) [Concomitant]

REACTIONS (1)
  - Pancytopenia [None]
